APPROVED DRUG PRODUCT: ECONOCHLOR
Active Ingredient: CHLORAMPHENICOL
Strength: 1%
Dosage Form/Route: OINTMENT;OPHTHALMIC
Application: A061648 | Product #001
Applicant: ALCON LABORATORIES INC
Approved: Approved Prior to Jan 1, 1982 | RLD: No | RS: No | Type: DISCN